FAERS Safety Report 11359603 (Version 1)
Quarter: 2015Q3

REPORT INFORMATION
  Report Type: Report from Study
  Country: FR (occurrence: FR)
  Receive Date: 20150807
  Receipt Date: 20150807
  Transmission Date: 20151125
  Serious: Yes (Other)
  Sender: FDA-Public Use
  Company Number: FR-BIOMARINAP-FR-2015-107074

PATIENT
  Age: 14 Year
  Sex: Male

DRUGS (1)
  1. NAGLAZYME [Suspect]
     Active Substance: GALSULFASE
     Indication: MUCOPOLYSACCHARIDOSIS VI
     Dosage: 1 MG/KG, QW
     Route: 042
     Dates: start: 20070829

REACTIONS (1)
  - Lumbar spinal stenosis [Recovered/Resolved]

NARRATIVE: CASE EVENT DATE: 20131103
